FAERS Safety Report 5934344-9 (Version None)
Quarter: 2008Q4

REPORT INFORMATION
  Report Type: 
  Country: None (occurrence: None)
  Receive Date: 20081029
  Receipt Date: 20081021
  Transmission Date: 20090506
  Serious: Yes (Other)
  Sender: FDA-Public Use
  Company Number: PHHY2008JP24342

PATIENT

DRUGS (2)
  1. VOLTAREN [Suspect]
     Indication: ANALGESIA
     Route: 048
  2. ASPIRIN [Concomitant]
     Indication: CEREBRAL INFARCTION
     Route: 048

REACTIONS (2)
  - ABDOMINAL DISCOMFORT [None]
  - CEREBRAL INFARCTION [None]
